FAERS Safety Report 17760195 (Version 1)
Quarter: 2020Q2

REPORT INFORMATION
  Report Type: Spontaneous
  Country: DE (occurrence: DE)
  Receive Date: 20200508
  Receipt Date: 20200508
  Transmission Date: 20200714
  Serious: Yes (Death, Hospitalization)
  Sender: FDA-Public Use
  Company Number: DE-TEVA-2020-DE-1227581

PATIENT
  Age: 71 Year
  Sex: Female

DRUGS (10)
  1. PEMETREXED. [Suspect]
     Active Substance: PEMETREXED
     Dosage: NK MG, ACCORDING TO THE SCHEME
     Route: 065
  2. OCUVITE [Concomitant]
     Active Substance: VITAMINS
     Dosage: NK MG,
  3. URSOFALK 250MG [Concomitant]
     Dosage: 250 MG, 2-2-2-2
  4. IPRAMOL [Concomitant]
     Active Substance: ALBUTEROL SULFATE\IPRATROPIUM BROMIDE
     Dosage: NK MG, 4X
  5. CALCIUM [Concomitant]
     Active Substance: CALCIUM
     Dosage: 500 MILLIGRAM DAILY; 500 MG, 0-1-0-0
  6. LEVOTHYROXIN-NATRIUM [Concomitant]
     Active Substance: LEVOTHYROXINE SODIUM
     Dosage: 150 MICROGRAM DAILY; 150 MICROGRAM DAILY; 150MG, 1-0-0-0
  7. PANTOPRAZOL [Concomitant]
     Active Substance: PANTOPRAZOLE SODIUM
     Dosage: 40 MILLIGRAM DAILY; 40 MG, 0-0-1-0
  8. PREDNISOLON [Concomitant]
     Active Substance: PREDNISOLONE
     Dosage: 5 MILLIGRAM DAILY; 5 MG, 1-0-0-0
  9. CARBOPLATIN. [Suspect]
     Active Substance: CARBOPLATIN
     Dosage: NK MG, ACCORDING TO THE SCHEME
  10. TRIMBOW 87MIKROGRAMM/5 MIKROGRAMM/9MIKROGRAMM [Concomitant]
     Dosage: 2 DOSAGE FORMS DAILY; 87|5|9 UG,

REACTIONS (2)
  - General physical health deterioration [Unknown]
  - Dyspnoea [Unknown]
